FAERS Safety Report 11155258 (Version 5)
Quarter: 2015Q4

REPORT INFORMATION
  Report Type: Spontaneous
  Country: US (occurrence: US)
  Receive Date: 20150602
  Receipt Date: 20151106
  Transmission Date: 20160304
  Serious: Yes (Hospitalization, Other)
  Sender: FDA-Public Use
  Company Number: US-PFIZER INC-2015177979

PATIENT
  Age: 74 Year
  Sex: Female
  Weight: 86 kg

DRUGS (13)
  1. FEMARA [Concomitant]
     Active Substance: LETROZOLE
     Dosage: 2.5 MG DAILY
     Route: 048
  2. DULCOLAX NOS [Concomitant]
     Active Substance: BISACODYL OR DOCUSATE SODIUM
     Dosage: 1 DF NIGHTLY
     Route: 048
  3. COUMADIN [Concomitant]
     Active Substance: WARFARIN SODIUM
     Dosage: 5 MG NIGHTLY
     Route: 048
  4. IBRANCE [Suspect]
     Active Substance: PALBOCICLIB
     Dosage: 100 MG, DAILY
     Route: 048
     Dates: start: 201505
  5. SENOKOT-S [Concomitant]
     Active Substance: DOCUSATE SODIUM\SENNOSIDES
     Dosage: DAILY
     Route: 048
  6. ZOFRAN [Concomitant]
     Active Substance: ONDANSETRON HYDROCHLORIDE
     Indication: NAUSEA
     Dosage: 8 MG EVERY 8 HOURS AS NEEDED
     Route: 048
  7. EFFEXOR XR [Concomitant]
     Active Substance: VENLAFAXINE HYDROCHLORIDE
     Dosage: 150 MG DAILY
     Route: 048
  8. IBRANCE [Suspect]
     Active Substance: PALBOCICLIB
     Indication: BREAST CANCER METASTATIC
     Dosage: 125 MG ONCE DAILY FOR 21 DAYS
     Route: 048
     Dates: start: 201504
  9. IBRANCE [Suspect]
     Active Substance: PALBOCICLIB
     Dosage: 100 MG ONCE DAILY FOR 21 DAYS
     Route: 048
     Dates: start: 20150521
  10. IBRANCE [Suspect]
     Active Substance: PALBOCICLIB
     Dosage: 100 MG, CYCLIC (ONE WEEK ON ONE WEEK OFF ONE WEEK OFF)
     Route: 048
     Dates: start: 20150504
  11. PEPCID [Concomitant]
     Active Substance: FAMOTIDINE
     Dosage: 10 MG AS NEEDED
     Route: 048
  12. TUMS [Concomitant]
     Active Substance: CALCIUM CARBONATE
     Indication: ANTACID THERAPY
     Dosage: 500 MG DAILY
     Route: 048
  13. VITAMIN D [Concomitant]
     Active Substance: CHOLECALCIFEROL
     Dosage: 2000 IU NIGHTLY
     Route: 048

REACTIONS (14)
  - Pneumonia [Recovered/Resolved]
  - Atelectasis [Unknown]
  - Pulmonary embolism [Unknown]
  - Depression [Recovered/Resolved]
  - Arthralgia [Recovered/Resolved]
  - Alopecia [Recovered/Resolved]
  - Insomnia [Recovered/Resolved]
  - Neutropenia [Recovered/Resolved]
  - Oedema [Unknown]
  - Asthenia [Unknown]
  - Pyrexia [Recovered/Resolved]
  - Thrombocytopenia [Recovering/Resolving]
  - Fatigue [Recovered/Resolved]
  - Anaemia [Recovered/Resolved]

NARRATIVE: CASE EVENT DATE: 20150527
